FAERS Safety Report 10502668 (Version 1)
Quarter: 2014Q4

REPORT INFORMATION
  Report Type: Spontaneous
  Country: FR (occurrence: FR)
  Receive Date: 20141007
  Receipt Date: 20141007
  Transmission Date: 20150528
  Serious: Yes (Other)
  Sender: FDA-Public Use
  Company Number: PHHY2014FR126610

PATIENT
  Age: 30 Year
  Sex: Female

DRUGS (5)
  1. IMOVANE [Concomitant]
     Active Substance: ZOPICLONE
     Indication: PRODUCT USED FOR UNKNOWN INDICATION
     Dosage: 7.5 MG, QD
     Route: 065
  2. DAFALGAN [Concomitant]
     Active Substance: ACETAMINOPHEN
     Indication: PRODUCT USED FOR UNKNOWN INDICATION
     Dosage: 1000 MG, TID
     Route: 065
  3. XANAX [Concomitant]
     Active Substance: ALPRAZOLAM
     Indication: PRODUCT USED FOR UNKNOWN INDICATION
     Dosage: 0.5 MG, QD
     Route: 065
  4. EXTAVIA [Suspect]
     Active Substance: INTERFERON BETA-1B
     Indication: PRODUCT USED FOR UNKNOWN INDICATION
     Dosage: 0.25 MG/ML, QOD
     Route: 058
     Dates: start: 20130122, end: 201404
  5. XYZALL [Concomitant]
     Active Substance: LEVOCETIRIZINE DIHYDROCHLORIDE
     Indication: PROPHYLAXIS
     Dosage: UNK UKN, UNK
     Route: 065
     Dates: start: 2013, end: 2013

REACTIONS (1)
  - Eosinophilia [Recovered/Resolved]

NARRATIVE: CASE EVENT DATE: 20140309
